FAERS Safety Report 4548715-9 (Version None)
Quarter: 2005Q1

REPORT INFORMATION
  Report Type: 
  Country: None (occurrence: None)
  Receive Date: 20050106
  Receipt Date: 20041228
  Transmission Date: 20050727
  Serious: Yes (Other)
  Sender: FDA-Public Use
  Company Number: S04-USA-08001-01

PATIENT
  Age: 81 Year
  Sex: Female

DRUGS (1)
  1. NAMENDA [Suspect]
     Dosage: 20 MG QD PO
     Route: 048
     Dates: start: 20040101

REACTIONS (2)
  - DIFFICULTY IN WALKING [None]
  - SPEECH DISORDER [None]
